FAERS Safety Report 11937292 (Version 1)
Quarter: 2016Q1

REPORT INFORMATION
  Report Type: Spontaneous
  Country: JP (occurrence: JP)
  Receive Date: 20160121
  Receipt Date: 20160121
  Transmission Date: 20160526
  Serious: Yes (Hospitalization, Other)
  Sender: FDA-Public Use
  Company Number: PHHY2016JP006582

PATIENT
  Age: 45 Year
  Sex: Female

DRUGS (4)
  1. PREDNISOLONE. [Suspect]
     Active Substance: PREDNISOLONE
     Indication: PERICARDITIS
     Dosage: 60 MG QD
     Route: 065
  2. PREDNISOLONE. [Suspect]
     Active Substance: PREDNISOLONE
     Dosage: 10 MG, DECREASE BY 10 MG/ 2 WEEKS
     Route: 065
  3. PREDNISOLONE. [Suspect]
     Active Substance: PREDNISOLONE
     Dosage: 50 MG, QD AFTER POST ONSET RESTART OF THERAPY
     Route: 065
  4. ASPIRIN. [Concomitant]
     Active Substance: ASPIRIN
     Indication: RHEUMATIC FEVER
     Route: 065

REACTIONS (4)
  - Glucose tolerance decreased [Unknown]
  - Hypertension [Recovered/Resolved]
  - Weight increased [Unknown]
  - Drug ineffective [Unknown]
